FAERS Safety Report 19814026 (Version 2)
Quarter: 2025Q2

REPORT INFORMATION
  Report Type: Spontaneous
  Country: PL (occurrence: PL)
  Receive Date: 20210910
  Receipt Date: 20250630
  Transmission Date: 20250716
  Serious: Yes (Death, Hospitalization, Other)
  Sender: MYLAN
  Company Number: PL-CELLTRION HEALTHCARE HUNGARY KFT-2020PL033112

PATIENT
  Age: 66 Year

DRUGS (26)
  1. DOXORUBICIN [Suspect]
     Active Substance: DOXORUBICIN
     Indication: Chronic lymphocytic leukaemia
  2. DOXORUBICIN [Suspect]
     Active Substance: DOXORUBICIN
     Indication: Richter^s syndrome
  3. CISPLATIN [Suspect]
     Active Substance: CISPLATIN
     Indication: Chronic lymphocytic leukaemia
  4. CISPLATIN [Suspect]
     Active Substance: CISPLATIN
  5. PREDNISONE [Suspect]
     Active Substance: PREDNISONE
     Indication: Richter^s syndrome
     Dates: start: 201311, end: 201312
  6. PREDNISONE [Suspect]
     Active Substance: PREDNISONE
     Indication: Chronic lymphocytic leukaemia
  7. RITUXIMAB [Suspect]
     Active Substance: RITUXIMAB
     Indication: Richter^s syndrome
  8. RITUXIMAB [Suspect]
     Active Substance: RITUXIMAB
     Indication: Chronic lymphocytic leukaemia
  9. RITUXIMAB [Suspect]
     Active Substance: RITUXIMAB
  10. RITUXIMAB [Suspect]
     Active Substance: RITUXIMAB
  11. DEXAMETHASONE [Suspect]
     Active Substance: DEXAMETHASONE
     Indication: Chronic lymphocytic leukaemia
  12. DEXAMETHASONE [Suspect]
     Active Substance: DEXAMETHASONE
     Indication: Richter^s syndrome
  13. CYCLOPHOSPHAMIDE [Suspect]
     Active Substance: CYCLOPHOSPHAMIDE
     Indication: Chronic lymphocytic leukaemia
     Dosage: UNK UNK, MONTHLY 2 CYCLES
     Dates: start: 201311, end: 201312
  14. CYCLOPHOSPHAMIDE [Suspect]
     Active Substance: CYCLOPHOSPHAMIDE
     Indication: Richter^s syndrome
  15. CYCLOPHOSPHAMIDE [Suspect]
     Active Substance: CYCLOPHOSPHAMIDE
     Indication: Chronic lymphocytic leukaemia
  16. CYCLOPHOSPHAMIDE [Suspect]
     Active Substance: CYCLOPHOSPHAMIDE
     Indication: Richter^s syndrome
  17. BENDAMUSTINE [Suspect]
     Active Substance: BENDAMUSTINE
     Indication: Chronic lymphocytic leukaemia
  18. BENDAMUSTINE [Suspect]
     Active Substance: BENDAMUSTINE
     Indication: Richter^s syndrome
  19. VINCRISTINE [Suspect]
     Active Substance: VINCRISTINE
     Indication: Chronic lymphocytic leukaemia
  20. VINCRISTINE [Suspect]
     Active Substance: VINCRISTINE
     Indication: Richter^s syndrome
     Dosage: UNK, MONTHLY
     Dates: start: 201311, end: 201312
  21. FLUDARABINE [Suspect]
     Active Substance: FLUDARABINE PHOSPHATE
     Indication: Chronic lymphocytic leukaemia
  22. CYTARABINE [Suspect]
     Active Substance: CYTARABINE
     Indication: Richter^s syndrome
  23. CYTARABINE [Suspect]
     Active Substance: CYTARABINE
     Indication: Chronic lymphocytic leukaemia
  24. FILGRASTIM [Concomitant]
     Active Substance: FILGRASTIM
     Indication: Product used for unknown indication
  25. GRANULOCYTE COLONY-STIMULATING FACTOR NOS [Concomitant]
     Active Substance: GRANULOCYTE COLONY-STIMULATING FACTOR NOS
  26. DARBEPOETIN ALFA [Concomitant]
     Active Substance: DARBEPOETIN ALFA

REACTIONS (7)
  - Death [Fatal]
  - Sepsis [Recovering/Resolving]
  - Disease progression [Unknown]
  - Richter^s syndrome [Unknown]
  - Off label use [Unknown]
  - Subcutaneous abscess [Unknown]
  - Infection [Unknown]

NARRATIVE: CASE EVENT DATE: 20190201
